FAERS Safety Report 12720370 (Version 1)
Quarter: 2016Q3

REPORT INFORMATION
  Report Type: Spontaneous
  Country: US (occurrence: US)
  Receive Date: 20160907
  Receipt Date: 20160907
  Transmission Date: 20161109
  Serious: Yes (Hospitalization, Other)
  Sender: FDA-Public Use
  Company Number: None

PATIENT
  Age: 5 Month
  Sex: Male
  Weight: 7.2 kg

DRUGS (1)
  1. ORAJEL [Suspect]
     Active Substance: ALLANTOIN\BENZOCAINE\CAMPHOR (NATURAL)\DIMETHICONE\MENTHOL
     Indication: TEETHING
     Dosage: OTHER STRENGTH:;OTHER DOSE:SWAB;OTHER FREQUENCY:;OTHER ROUTE:
     Route: 061
     Dates: start: 20160817, end: 20160819

REACTIONS (1)
  - Urticaria [None]

NARRATIVE: CASE EVENT DATE: 20160827
